FAERS Safety Report 4867086-1 (Version None)
Quarter: 2005Q4

REPORT INFORMATION
  Report Type: 
  Country: None (occurrence: None)
  Receive Date: 20051222
  Receipt Date: 20051212
  Transmission Date: 20060501
  Serious: Yes (Hospitalization)
  Sender: FDA-Public Use
  Company Number: 2005SP004358

PATIENT
  Age: 33 Year
  Sex: Female
  Weight: 44.4525 kg

DRUGS (6)
  1. LUNESTA [Suspect]
     Indication: INSOMNIA
     Dosage: 2 MG; 1X; ORAL
     Route: 048
     Dates: start: 20051208, end: 20051208
  2. AMOXICILLIN [Concomitant]
  3. CYMBALTA [Concomitant]
  4. CONCERTA [Concomitant]
  5. DURAGESIC-100 [Concomitant]
  6. MULTIVITAMIN [Concomitant]

REACTIONS (4)
  - ANGIONEUROTIC OEDEMA [None]
  - DYSGEUSIA [None]
  - DYSPNOEA [None]
  - INSOMNIA [None]
